FAERS Safety Report 9346318 (Version 1)
Quarter: 2013Q2

REPORT INFORMATION
  Report Type: Spontaneous
  Country: SE (occurrence: SE)
  Receive Date: 20130613
  Receipt Date: 20130613
  Transmission Date: 20140414
  Serious: Yes (Other)
  Sender: FDA-Public Use
  Company Number: SE-B.I. PHARMACEUTICALS,INC./RIDGEFIELD-2013-SW-00292SW

PATIENT
  Age: 81 Year
  Sex: Female

DRUGS (6)
  1. SPIRIVA [Suspect]
     Dosage: 18 MCG
     Route: 055
     Dates: start: 20060904, end: 20130411
  2. SIMVASTATIN [Concomitant]
  3. LASIX RETARD [Concomitant]
     Dosage: PROLONGED-RELEASE CAPSULE, HARD 60 MG
  4. SELOKENZOC [Concomitant]
     Dosage: PROLONGED-RELEASE TABLET 100 MG
  5. SPIRONOLAKTON [Concomitant]
  6. TROMBYL [Concomitant]
     Dosage: 75 MG

REACTIONS (2)
  - Hallucination [Recovered/Resolved]
  - Confusional state [Recovered/Resolved]
